FAERS Safety Report 23691159 (Version 1)
Quarter: 2024Q2

REPORT INFORMATION
  Report Type: Spontaneous
  Country: US (occurrence: US)
  Receive Date: 20240401
  Receipt Date: 20240401
  Transmission Date: 20240716
  Serious: No
  Sender: FDA-Public Use
  Company Number: US-ABBVIE-5695111

PATIENT
  Sex: Female

DRUGS (1)
  1. KYBELLA [Suspect]
     Active Substance: DEOXYCHOLIC ACID
     Indication: Gastrointestinal disorder
     Dosage: TIME INTERVAL: AS NECESSARY
     Route: 058
     Dates: start: 2023, end: 2023

REACTIONS (1)
  - Fat tissue increased [Unknown]
